FAERS Safety Report 8397982 (Version 6)
Quarter: 2014Q1

REPORT INFORMATION
  Report Type: Spontaneous
  Country: CA (occurrence: CA)
  Receive Date: 20120209
  Receipt Date: 20140130
  Transmission Date: 20141002
  Serious: Yes (Hospitalization, Other)
  Sender: FDA-Public Use
  Company Number: CA-GLAXOSMITHKLINE-A0948892A

PATIENT
  Age: 71 Year
  Sex: Female
  Weight: 90.9 kg

DRUGS (4)
  1. ADVAIR [Suspect]
     Indication: CHRONIC OBSTRUCTIVE PULMONARY DISEASE
     Dosage: 1PUFF TWICE PER DAY
     Route: 055
     Dates: start: 2007
  2. SPIRIVA [Concomitant]
  3. VENTOLIN [Concomitant]
  4. REACTINE (CETIRIZINE HYDROCHLORIDE) [Concomitant]

REACTIONS (15)
  - Pneumonia [Recovered/Resolved]
  - Malaise [Recovering/Resolving]
  - Respiratory tract congestion [Recovering/Resolving]
  - Increased upper airway secretion [Recovering/Resolving]
  - Groin abscess [Recovered/Resolved]
  - Cough [Not Recovered/Not Resolved]
  - Poor quality sleep [Recovered/Resolved]
  - Sleep disorder [Recovered/Resolved]
  - Oxygen saturation decreased [Unknown]
  - Musculoskeletal chest pain [Unknown]
  - Fall [Recovered/Resolved]
  - Rib fracture [Recovered/Resolved]
  - Dyspnoea [Recovered/Resolved]
  - Chest injury [Recovered/Resolved]
  - Treatment noncompliance [Unknown]
